FAERS Safety Report 7691532-1 (Version None)
Quarter: 2011Q3

REPORT INFORMATION
  Report Type: 
  Country: None (occurrence: None)
  Receive Date: 20110817
  Receipt Date: 20110817
  Transmission Date: 20111222
  Serious: Yes (Hospitalization)
  Sender: FDA-Public Use
  Company Number: None

PATIENT
  Age: 53 Year
  Sex: Female
  Weight: 44 kg

DRUGS (1)
  1. RECLAST [Suspect]
     Indication: OSTEOPOROSIS
     Dosage: PRESUMED YEARLY IV
     Route: 042
     Dates: start: 20101220

REACTIONS (6)
  - DIARRHOEA [None]
  - PNEUMONIA [None]
  - HAEMODIALYSIS [None]
  - RENAL FAILURE [None]
  - HALLUCINATION, VISUAL [None]
  - VOMITING [None]
